FAERS Safety Report 8789341 (Version 1)
Quarter: 2012Q4

REPORT INFORMATION
  Report Type: Spontaneous
  Country: US (occurrence: None)
  Receive Date: 20120910
  Receipt Date: 20120910
  Transmission Date: 20130627
  Serious: No
  Sender: FDA-Public Use
  Company Number: None

PATIENT

DRUGS (3)
  1. ZONISAMIDE [Suspect]
     Indication: SEIZURE
     Route: 048
  2. OUFI [Concomitant]
  3. DEPOKEOTE [Concomitant]

REACTIONS (2)
  - Product substitution issue [None]
  - Convulsion [None]
